FAERS Safety Report 14445123 (Version 1)
Quarter: 2018Q1

REPORT INFORMATION
  Report Type: Report from Study
  Country: US (occurrence: US)
  Receive Date: 20180126
  Receipt Date: 20180126
  Transmission Date: 20180509
  Serious: No
  Sender: FDA-Public Use
  Company Number: US-ROCHE-2061244

PATIENT
  Age: 69 Year
  Sex: Female

DRUGS (2)
  1. OCREVUS [Suspect]
     Active Substance: OCRELIZUMAB
     Indication: MULTIPLE SCLEROSIS
     Dosage: ON 14/DEC/2017, THE PATIENT WAS PRESCRIBED WITH OCRELIZUMAB INFUSION 300 MG ADMINISTERED ON DAY 1 AN
     Route: 042
     Dates: start: 20171228
  2. OCREVUS [Suspect]
     Active Substance: OCRELIZUMAB
     Route: 042
     Dates: start: 20180111

REACTIONS (3)
  - Malaise [Not Recovered/Not Resolved]
  - Influenza [Not Recovered/Not Resolved]
  - Genital herpes [Not Recovered/Not Resolved]

NARRATIVE: CASE EVENT DATE: 20180118
